FAERS Safety Report 9185715 (Version 1)
Quarter: 2013Q1

REPORT INFORMATION
  Report Type: Spontaneous
  Country: MX (occurrence: MX)
  Receive Date: 20130325
  Receipt Date: 20130325
  Transmission Date: 20140127
  Serious: Yes (Hospitalization)
  Sender: FDA-Public Use
  Company Number: PHHY2013MX028292

PATIENT
  Age: 59 Year
  Sex: Male

DRUGS (1)
  1. EXFORGE HCT [Suspect]
     Indication: HYPERTENSION
     Dosage: 1 DF, (320/10/25 MG) DAILY
     Route: 048
     Dates: start: 20120602

REACTIONS (1)
  - Pleural effusion [Recovered/Resolved]
